FAERS Safety Report 12463274 (Version 1)
Quarter: 2016Q2

REPORT INFORMATION
  Report Type: Spontaneous
  Country: US (occurrence: None)
  Receive Date: 20160613
  Receipt Date: 20160613
  Transmission Date: 20160815
  Serious: Yes (Other)
  Sender: FDA-Public Use
  Company Number: None

PATIENT
  Age: 54 Year
  Sex: Female
  Weight: 117.48 kg

DRUGS (1)
  1. REXULTI [Suspect]
     Active Substance: BREXPIPRAZOLE
     Indication: BIPOLAR DISORDER
     Route: 048
     Dates: start: 20160527, end: 20160603

REACTIONS (24)
  - Impaired healing [None]
  - Pyrexia [None]
  - Skin fissures [None]
  - Scab [None]
  - Skin mass [None]
  - Hyperhidrosis [None]
  - Lethargy [None]
  - Arthralgia [None]
  - Stomatitis [None]
  - Dizziness [None]
  - Myalgia [None]
  - Rhinorrhoea [None]
  - Loss of consciousness [None]
  - Asthenia [None]
  - Secretion discharge [None]
  - Lip swelling [None]
  - Cheilitis [None]
  - Influenza like illness [None]
  - Nasal ulcer [None]
  - Oral pain [None]
  - Oropharyngeal pain [None]
  - Pain [None]
  - Joint swelling [None]
  - Skin disorder [None]

NARRATIVE: CASE EVENT DATE: 20160530
